FAERS Safety Report 8192953-3 (Version None)
Quarter: 2012Q1

REPORT INFORMATION
  Report Type: 
  Country: None (occurrence: None)
  Receive Date: 20120308
  Receipt Date: 20120302
  Transmission Date: 20120608
  Serious: Yes (Other)
  Sender: FDA-Public Use
  Company Number: US-BRISTOL-MYERS SQUIBB COMPANY-16430001

PATIENT
  Age: 50 Year
  Sex: Male

DRUGS (3)
  1. ERBITUX [Suspect]
     Indication: COLORECTAL CANCER METASTATIC
     Dosage: RECEIVED ON 14-FEB-2012,21-FEB-2012, 28-FEB-2012
  2. OXALIPLATIN [Suspect]
     Indication: COLORECTAL CANCER METASTATIC
  3. FLUOROURACIL [Suspect]
     Indication: COLORECTAL CANCER METASTATIC

REACTIONS (3)
  - NAUSEA [None]
  - ABDOMINAL PAIN UPPER [None]
  - PLATELET COUNT DECREASED [None]
